FAERS Safety Report 5608677-X (Version None)
Quarter: 2008Q1

REPORT INFORMATION
  Report Type: 
  Country: None (occurrence: None)
  Receive Date: 20080131
  Receipt Date: 20080118
  Transmission Date: 20080703
  Serious: Yes (Other)
  Sender: FDA-Public Use
  Company Number: US-PFIZER INC-2007103933

PATIENT
  Sex: Female
  Weight: 88.6 kg

DRUGS (14)
  1. CHANTIX [Suspect]
     Indication: SMOKING CESSATION THERAPY
     Route: 048
     Dates: start: 20071101, end: 20071203
  2. CLINDAMYCIN HCL [Suspect]
  3. PENICILLIN [Suspect]
  4. PREDNISONE TAB [Suspect]
  5. ALL OTHER THERAPEUTIC PRODUCTS [Suspect]
  6. LORTAB [Suspect]
  7. ZYRTEC [Concomitant]
     Indication: HYPERSENSITIVITY
  8. CELEXA [Concomitant]
     Indication: DEPRESSION
  9. ULTRAM [Concomitant]
  10. CODEINE [Concomitant]
  11. CIPROFLOXACIN [Concomitant]
  12. NSAID'S [Concomitant]
  13. HUMIBID DM [Concomitant]
  14. LEXAPRO [Concomitant]

REACTIONS (13)
  - ABDOMINAL PAIN [None]
  - ABNORMAL DREAMS [None]
  - ANGIOEDEMA [None]
  - ASTHMA [None]
  - BRADYPHRENIA [None]
  - CONFUSIONAL STATE [None]
  - DEPRESSION [None]
  - NERVOUSNESS [None]
  - POLLAKIURIA [None]
  - RASH [None]
  - STOMACH DISCOMFORT [None]
  - TOBACCO ABUSE [None]
  - URTICARIA [None]
